FAERS Safety Report 17999443 (Version 1)
Quarter: 2020Q3

REPORT INFORMATION
  Report Type: Spontaneous
  Country: IT (occurrence: IT)
  Receive Date: 20200709
  Receipt Date: 20200709
  Transmission Date: 20201103
  Serious: Yes (Hospitalization)
  Sender: FDA-Public Use
  Company Number: NVSC2020IT158315

PATIENT
  Age: 67 Year
  Sex: Male

DRUGS (6)
  1. MEROPENEM. [Suspect]
     Active Substance: MEROPENEM
     Indication: KLEBSIELLA INFECTION
     Dosage: UNK
     Route: 065
  2. FOSFOMYCIN [Suspect]
     Active Substance: FOSFOMYCIN
     Indication: KLEBSIELLA INFECTION
     Dosage: UNK
     Route: 065
  3. CEFTAZIDIME. [Suspect]
     Active Substance: CEFTAZIDIME
     Indication: KLEBSIELLA INFECTION
     Dosage: UNK
     Route: 065
  4. GENTAMICIN. [Suspect]
     Active Substance: GENTAMICIN
     Indication: KLEBSIELLA INFECTION
     Dosage: UNK
     Route: 065
  5. AVIBACTAM [Suspect]
     Active Substance: AVIBACTAM
     Indication: KLEBSIELLA INFECTION
     Dosage: UNK
     Route: 065
  6. AVIBACTAM W/CEFTAZIDIME [Suspect]
     Active Substance: AVIBACTAM SODIUM\CEFTAZIDIME
     Indication: KLEBSIELLA INFECTION
     Dosage: UNK
     Route: 065

REACTIONS (3)
  - Klebsiella infection [Unknown]
  - Pathogen resistance [Unknown]
  - Drug resistance [Unknown]
